FAERS Safety Report 5697859-7 (Version None)
Quarter: 2008Q2

REPORT INFORMATION
  Report Type: 
  Country: None (occurrence: None)
  Receive Date: 20080408
  Receipt Date: 20080401
  Transmission Date: 20081010
  Serious: Yes (Other)
  Sender: FDA-Public Use
  Company Number: US-GENENTECH-258719

PATIENT
  Sex: Male

DRUGS (1)
  1. RITUXAN [Suspect]
     Indication: LYMPHOCYTIC LEUKAEMIA
     Dosage: UNK, UNK
     Route: 042

REACTIONS (2)
  - PNEUMONIA [None]
  - PULMONARY EMBOLISM [None]
